FAERS Safety Report 25909505 (Version 5)
Quarter: 2025Q4

REPORT INFORMATION
  Report Type: Spontaneous
  Country: JP (occurrence: JP)
  Receive Date: 20251011
  Receipt Date: 20251113
  Transmission Date: 20260118
  Serious: Yes (Hospitalization, Other)
  Sender: ALEXION PHARMACEUTICALS
  Company Number: JP-ASTRAZENECA-202510JPN006611JP

PATIENT
  Age: 79 Year
  Sex: Female

DRUGS (5)
  1. TRUQAP [Suspect]
     Active Substance: CAPIVASERTIB
     Indication: Breast cancer female
     Route: 065
  2. FASLODEX [Suspect]
     Active Substance: FULVESTRANT
     Indication: Breast cancer female
     Route: 065
  3. FASLODEX [Suspect]
     Active Substance: FULVESTRANT
  4. ARIMIDEX [Suspect]
     Active Substance: ANASTROZOLE
     Indication: Breast cancer recurrent
     Dosage: 1 MILLIGRAM, QD
     Route: 065
  5. CAPECITABINE [Suspect]
     Active Substance: CAPECITABINE
     Indication: Breast cancer recurrent
     Dosage: 2400 MILLIGRAM, QD2,400 MG/DAY Q4W D1~21 (8 CYCLES).
     Route: 065

REACTIONS (8)
  - Tubulointerstitial nephritis [Recovered/Resolved]
  - Decreased appetite [Recovered/Resolved]
  - Hyperglycaemia [Recovered/Resolved]
  - Erythema [Recovered/Resolved]
  - Metastases to liver [Unknown]
  - Breast cancer recurrent [Unknown]
  - Thrombocytopenia [Unknown]
  - Anaemia [Unknown]
